FAERS Safety Report 6762744-6 (Version None)
Quarter: 2010Q2

REPORT INFORMATION
  Report Type: 
  Country: None (occurrence: None)
  Receive Date: 20100609
  Receipt Date: 20100601
  Transmission Date: 20101027
  Serious: Yes (Other)
  Sender: FDA-Public Use
  Company Number: A0863820A

PATIENT
  Age: 78 Year
  Sex: Female

DRUGS (1)
  1. REQUIP [Suspect]
     Indication: RESTLESS LEGS SYNDROME
     Dosage: 45MG UNKNOWN
     Route: 048
     Dates: start: 20050101, end: 20100101

REACTIONS (1)
  - PULMONARY FIBROSIS [None]
